FAERS Safety Report 11522518 (Version 1)
Quarter: 2015Q3

REPORT INFORMATION
  Report Type: Spontaneous
  Country: US (occurrence: US)
  Receive Date: 20150918
  Receipt Date: 20150918
  Transmission Date: 20151125
  Serious: Yes (Other)
  Sender: FDA-Public Use
  Company Number: US-ROCHE-704761

PATIENT
  Age: 40 Year
  Sex: Female
  Weight: 49.9 kg

DRUGS (6)
  1. REBETOL [Suspect]
     Active Substance: RIBAVIRIN
     Indication: HEPATITIS C
     Dosage: DIVIDED DOSES, 600 MG IN THE MORNING AND 400 MG IN THE EVENING
     Route: 048
     Dates: start: 20091019, end: 20101011
  2. VITAMIN B COMPLEX [Concomitant]
     Active Substance: CYANOCOBALAMIN\DEXPANTHENOL\NIACINAMIDE\PYRIDOXINE HYDROCHLORIDE\RIBOFLAVIN 5^-PHOSPHATE SODIUM\THIAMINE HYDROCHLORIDE\VITAMIN B COMPLEX
     Route: 065
  3. SULFOXONE. [Concomitant]
     Active Substance: SULFOXONE
     Route: 065
  4. PEGASYS [Suspect]
     Active Substance: PEGINTERFERON ALFA-2A
     Indication: HEPATITIS C
     Dosage: FORM: PRE-FILLED SYRINGE.
     Route: 058
     Dates: start: 20091019, end: 20100318
  5. PRENATAL PLUS [Concomitant]
     Active Substance: .ALPHA.-TOCOPHEROL ACETATE, DL-\.BETA.-CAROTENE\ASCORBIC ACID\CALCIUM CARBONATE\CHOLECALCIFEROL\CUPRIC OXIDE\CYANOCOBALAMIN\FERROUS FUMARATE\FOLIC ACID\NIACINAMIDE\PYRIDOXINE HYDROCHLORIDE\RIBOFLAVIN\THIAMINE MONONITRATE\VITAMIN A ACETATE\ZINC OXIDE
     Route: 065
  6. PEGASYS [Suspect]
     Active Substance: PEGINTERFERON ALFA-2A
     Route: 058
     Dates: start: 20100318, end: 20101011

REACTIONS (19)
  - Arthralgia [Not Recovered/Not Resolved]
  - Vomiting [Recovered/Resolved]
  - Pain [Recovering/Resolving]
  - Weight decreased [Recovering/Resolving]
  - Drug screen positive [Unknown]
  - White blood cell count decreased [Unknown]
  - Malaise [Unknown]
  - Myalgia [Unknown]
  - Insomnia [Recovered/Resolved]
  - Red blood cell count decreased [Unknown]
  - Hepatitis C RNA positive [Unknown]
  - Platelet count decreased [Unknown]
  - Stomatitis [Recovered/Resolved]
  - Psoriasis [Recovered/Resolved]
  - Fatigue [Recovering/Resolving]
  - Drug screen [Unknown]
  - Haemoglobin decreased [Unknown]
  - Haematocrit decreased [Unknown]
  - Sensory loss [Not Recovered/Not Resolved]

NARRATIVE: CASE EVENT DATE: 20100315
